FAERS Safety Report 8171357-3 (Version None)
Quarter: 2012Q1

REPORT INFORMATION
  Report Type: 
  Country: None (occurrence: None)
  Receive Date: 20120228
  Receipt Date: 20120224
  Transmission Date: 20120608
  Serious: Yes (Hospitalization, Other)
  Sender: FDA-Public Use
  Company Number: US-PFIZER INC-2011033558

PATIENT
  Sex: Female
  Weight: 88.435 kg

DRUGS (2)
  1. DILANTIN [Suspect]
     Dosage: 500 MG, 1X/DAY
     Route: 048
     Dates: start: 19871207
  2. DILANTIN [Suspect]
     Indication: CONVULSION
     Dosage: 400 MG, 1X/DAY
     Route: 048
     Dates: start: 19860101, end: 19861206

REACTIONS (3)
  - BRAIN NEOPLASM [None]
  - DIZZINESS [None]
  - TOXICITY TO VARIOUS AGENTS [None]
